FAERS Safety Report 18485032 (Version 1)
Quarter: 2020Q4

REPORT INFORMATION
  Report Type: Report from Study
  Country: GB (occurrence: GB)
  Receive Date: 20201110
  Receipt Date: 20201110
  Transmission Date: 20210114
  Serious: Yes (Other)
  Sender: FDA-Public Use
  Company Number: GB-TEVA-2020-GB-1847430

PATIENT
  Sex: Female

DRUGS (1)
  1. AJOVY [Suspect]
     Active Substance: FREMANEZUMAB-VFRM
     Indication: MIGRAINE
     Route: 058

REACTIONS (6)
  - Palpitations [Unknown]
  - Cardiac disorder [Unknown]
  - Dizziness [Unknown]
  - Chest pain [Unknown]
  - Nausea [Unknown]
  - Pain in extremity [Unknown]
